FAERS Safety Report 11970848 (Version 1)
Quarter: 2016Q1

REPORT INFORMATION
  Report Type: Spontaneous
  Country: US (occurrence: None)
  Receive Date: 20160126
  Receipt Date: 20160126
  Transmission Date: 20160526
  Serious: Yes (Hospitalization)
  Sender: FDA-Public Use
  Company Number: None

PATIENT
  Age: 68 Year
  Sex: Female
  Weight: 75.1 kg

DRUGS (10)
  1. AVASTIN [Suspect]
     Active Substance: BEVACIZUMAB
     Dosage: 50/MG/M2/DAY  DAYS 1, 8, AND 15  IV
     Route: 042
     Dates: start: 20160106, end: 20160113
  2. ABRAXANE [Suspect]
     Active Substance: PACLITAXEL
     Dosage: 125MG/M2/DAY  DAYS 1, 8, AND 15  IV
     Route: 042
     Dates: start: 20160106, end: 20160113
  3. XANAX [Concomitant]
     Active Substance: ALPRAZOLAM
  4. FIRST MOUTHWASH BLM [Concomitant]
     Active Substance: ALUMINUM HYDROXIDE\DIMETHICONE 410\DIPHENHYDRAMINE HYDROCHLORIDE\LIDOCAINE HYDROCHLORIDE\MAGNESIUM HYDROXIDE
  5. VITAMIN D3 [Concomitant]
     Active Substance: CHOLECALCIFEROL
  6. OMEGA 3 [Concomitant]
     Active Substance: OMEGA-3 FATTY ACIDS
  7. ASPIRIN. [Concomitant]
     Active Substance: ASPIRIN
  8. PREDNISONE. [Concomitant]
     Active Substance: PREDNISONE
  9. SYNTHROID [Concomitant]
     Active Substance: LEVOTHYROXINE SODIUM
  10. PROCHLORPERAZINE (COMPAZINE) [Concomitant]

REACTIONS (3)
  - Febrile neutropenia [None]
  - Dehydration [None]
  - Tachycardia [None]

NARRATIVE: CASE EVENT DATE: 20160120
